FAERS Safety Report 5274437-5 (Version None)
Quarter: 2007Q1

REPORT INFORMATION
  Report Type: 
  Country: None (occurrence: None)
  Receive Date: 20070323
  Receipt Date: 20070313
  Transmission Date: 20070707
  Serious: Yes (Other)
  Sender: FDA-Public Use
  Company Number: PFIZER INC-2007019537

PATIENT
  Age: 51 Year
  Sex: Female

DRUGS (1)
  1. MECLIZINE [Suspect]

REACTIONS (3)
  - BALANCE DISORDER [None]
  - DIZZINESS [None]
  - GAIT DISTURBANCE [None]
